FAERS Safety Report 17946328 (Version 5)
Quarter: 2020Q3

REPORT INFORMATION
  Report Type: Spontaneous
  Country: US (occurrence: US)
  Receive Date: 20200625
  Receipt Date: 20200811
  Transmission Date: 20201103
  Serious: No
  Sender: FDA-Public Use
  Company Number: US-PFIZER INC-2020244210

PATIENT
  Age: 65 Year
  Sex: Female

DRUGS (2)
  1. XELJANZ [Suspect]
     Active Substance: TOFACITINIB CITRATE
     Indication: RHEUMATOID ARTHRITIS
     Dosage: 5 MG, 2X/DAY
     Route: 048
     Dates: start: 20200618, end: 20200619
  2. METHOTREXATE. [Concomitant]
     Active Substance: METHOTREXATE
     Dosage: UNK

REACTIONS (9)
  - Lip swelling [Recovered/Resolved]
  - Cheilitis [Unknown]
  - Intentional product misuse [Unknown]
  - Eye inflammation [Unknown]
  - Drug hypersensitivity [Unknown]
  - Hypoaesthesia oral [Unknown]
  - Paraesthesia oral [Unknown]
  - Eye swelling [Recovered/Resolved]
  - Swelling of eyelid [Unknown]

NARRATIVE: CASE EVENT DATE: 20200618
